FAERS Safety Report 8947867 (Version 1)
Quarter: 2012Q4

REPORT INFORMATION
  Report Type: 
  Country: IR (occurrence: IR)
  Receive Date: 20121204
  Receipt Date: 20121204
  Transmission Date: 20130627
  Serious: Yes (Hospitalization)
  Sender: FDA-Public Use
  Company Number: IR-PFIZER INC-2012299143

PATIENT
  Age: 27 Year
  Sex: Female

DRUGS (4)
  1. RIFAMPICIN [Suspect]
     Indication: BRUCELLOSIS
     Dosage: 600 mg, 1x/day
     Route: 048
  2. CITALOPRAM [Interacting]
     Indication: PANIC ATTACKS
     Dosage: 20 mg /day
  3. CITALOPRAM [Interacting]
     Dosage: 40 mg /day
  4. DOXYCYCLINE CALCIUM [Interacting]
     Indication: BRUCELLOSIS
     Dosage: 100 mg, 2x/day
     Route: 048

REACTIONS (10)
  - Drug interaction [Recovering/Resolving]
  - Dyspepsia [Recovering/Resolving]
  - Nausea [Recovering/Resolving]
  - Vomiting [Recovering/Resolving]
  - Abdominal pain [Recovering/Resolving]
  - Hyperhidrosis [Recovering/Resolving]
  - Anxiety [Recovering/Resolving]
  - Agitation [Recovering/Resolving]
  - Tachycardia [Recovering/Resolving]
  - Panic attack [Recovering/Resolving]
